FAERS Safety Report 8279134-X (Version None)
Quarter: 2012Q2

REPORT INFORMATION
  Report Type: 
  Country: None (occurrence: None)
  Receive Date: 20120412
  Receipt Date: 20111024
  Transmission Date: 20120825
  Serious: No
  Sender: FDA-Public Use
  Company Number: US-ASTRAZENECA-2011SE49187

PATIENT
  Age: 48 Year
  Sex: Female

DRUGS (1)
  1. NEXIUM [Suspect]
     Route: 048

REACTIONS (5)
  - ARTHRITIS [None]
  - FALL [None]
  - DYSGRAPHIA [None]
  - MALAISE [None]
  - LUMBAR SPINAL STENOSIS [None]
